FAERS Safety Report 8600684-8 (Version None)
Quarter: 2012Q3

REPORT INFORMATION
  Report Type: 
  Country: None (occurrence: None)
  Receive Date: 20120817
  Receipt Date: 20120810
  Transmission Date: 20120928
  Serious: Yes (Other)
  Sender: FDA-Public Use
  Company Number: JP-JNJFOC-20120704144

PATIENT
  Sex: Female
  Weight: 45 kg

DRUGS (22)
  1. METHOTREXATE [Concomitant]
     Indication: RHEUMATOID ARTHRITIS
     Route: 048
     Dates: end: 20111130
  2. PREDNISOLONE [Concomitant]
     Indication: RHEUMATOID ARTHRITIS
     Route: 048
     Dates: start: 20120619
  3. LOXONIN [Concomitant]
     Indication: RHEUMATOID ARTHRITIS
     Route: 048
     Dates: end: 20120206
  4. RECALBON [Concomitant]
     Route: 048
  5. NEXIUM [Concomitant]
     Indication: PROPHYLAXIS
     Route: 048
  6. SIMPONI [Suspect]
     Indication: RHEUMATOID ARTHRITIS
     Route: 058
     Dates: start: 20111017
  7. OPALMON [Concomitant]
     Indication: PROPHYLAXIS
     Route: 048
  8. ZOLPIDEM [Concomitant]
     Route: 048
  9. PROGRAF [Concomitant]
     Indication: RHEUMATOID ARTHRITIS
  10. ENZYME PREPARATIONS [Concomitant]
     Indication: PROPHYLAXIS
     Route: 048
  11. XYZAL [Concomitant]
     Route: 048
  12. AMPHOTERICIN B [Concomitant]
     Indication: PROPHYLAXIS
     Route: 048
  13. PREDNISOLONE [Concomitant]
     Route: 048
     Dates: start: 20110930, end: 20111016
  14. FOLIC ACID [Concomitant]
     Indication: PROPHYLAXIS
     Route: 048
  15. SIMPONI [Suspect]
     Route: 058
     Dates: start: 20111114
  16. SIMPONI [Suspect]
     Route: 058
     Dates: start: 20111130, end: 20111212
  17. SELBEX [Concomitant]
     Indication: PROPHYLAXIS
     Route: 048
  18. METOPROLOL TARTRATE [Concomitant]
     Indication: PROPHYLAXIS
     Route: 048
  19. HIRUDOID (HEPARINOID) [Concomitant]
     Indication: PROPHYLAXIS
     Route: 062
  20. PREDNISOLONE [Concomitant]
     Route: 048
     Dates: start: 20111017, end: 20120618
  21. CLARITHROMYCIN [Concomitant]
     Route: 048
  22. CARVEDILOL [Concomitant]
     Indication: CARDIAC FAILURE CHRONIC
     Route: 048

REACTIONS (2)
  - UPPER RESPIRATORY TRACT INFLAMMATION [None]
  - INTERSTITIAL LUNG DISEASE [None]
